FAERS Safety Report 24118344 (Version 2)
Quarter: 2024Q3

REPORT INFORMATION
  Report Type: Other
  Country: FR (occurrence: FR)
  Receive Date: 20240722
  Receipt Date: 20240814
  Transmission Date: 20241016
  Serious: Yes (Death, Congenital Anomaly)
  Sender: BIOCON
  Company Number: None

PATIENT

DRUGS (3)
  1. TRASTUZUMAB [Suspect]
     Active Substance: TRASTUZUMAB
     Indication: Breast cancer
     Dosage: DOSAGE NOT REPORTED, ((MAMMAL/HAMSTER/CHO CELLS)
     Route: 065
     Dates: start: 2020
  2. CAPECITABINE [Suspect]
     Active Substance: CAPECITABINE
     Indication: Breast cancer
     Dosage: DOSAGE NOT REPORTED
     Route: 065
     Dates: start: 2020
  3. TUCATINIB [Suspect]
     Active Substance: TUCATINIB
     Indication: Breast cancer
     Dosage: DOSAGE NOT REPORTED
     Route: 065
     Dates: start: 2020

REACTIONS (9)
  - Hypertelorism [Fatal]
  - Nose deformity [Fatal]
  - Dysmorphism [Fatal]
  - Polydactyly [Fatal]
  - Congenital pulmonary airway malformation [Fatal]
  - Ear malformation [Fatal]
  - Abortion induced [Fatal]
  - Foetal exposure during pregnancy [Unknown]
  - Foetal exposure during pregnancy [Recovered/Resolved]
